FAERS Safety Report 6326288-8 (Version None)
Quarter: 2009Q3

REPORT INFORMATION
  Report Type: 
  Country: None (occurrence: None)
  Receive Date: 20090821
  Receipt Date: 20090807
  Transmission Date: 20100115
  Serious: Yes (Death, Hospitalization)
  Sender: FDA-Public Use
  Company Number: 2008AL011793

PATIENT
  Age: 74 Year
  Sex: Female

DRUGS (26)
  1. DIGOXIN [Suspect]
     Indication: ATRIAL FIBRILLATION
     Dosage: 0.25MG, DAILY, PO
     Route: 048
  2. ZITHROMAX [Concomitant]
  3. LASIX [Concomitant]
  4. PLAVIX [Concomitant]
  5. PREMARIN [Concomitant]
  6. XANAX [Concomitant]
  7. THYROID TAB [Concomitant]
  8. VICODIN [Concomitant]
  9. POTASSIUM CHLORIDE [Concomitant]
  10. ATENOLOL [Concomitant]
  11. HYDROCODONE [Concomitant]
  12. PROTONIX [Concomitant]
  13. SYNTHROID [Concomitant]
  14. EPOGEN [Concomitant]
  15. ASCORBIC ACID [Concomitant]
  16. FOLIC ACID [Concomitant]
  17. VITAMIN B-12 [Concomitant]
  18. AVELOX [Concomitant]
  19. AMIODARONE HCL [Concomitant]
  20. NITROGLYCERIN [Concomitant]
  21. ATIVAN [Concomitant]
  22. HALDOL [Concomitant]
  23. ALPRAZOLAM [Concomitant]
  24. CLOPIDOGREL [Concomitant]
  25. SPIRONOLACTONE [Concomitant]
  26. ALTACE [Concomitant]

REACTIONS (22)
  - ANAEMIA [None]
  - ARTERIAL THROMBOSIS [None]
  - ATRIAL FIBRILLATION [None]
  - ATRIOVENTRICULAR BLOCK COMPLETE [None]
  - BLOOD CREATINE PHOSPHOKINASE INCREASED [None]
  - BLOOD PRESSURE SYSTOLIC INCREASED [None]
  - CARDIAC ARREST [None]
  - CARDIOACTIVE DRUG LEVEL INCREASED [None]
  - COUGH [None]
  - EROSIVE OESOPHAGITIS [None]
  - GASTRIC ULCER [None]
  - GASTROINTESTINAL HAEMORRHAGE [None]
  - HYPERKALAEMIA [None]
  - INJURY [None]
  - INTESTINAL ISCHAEMIA [None]
  - OROPHARYNGEAL PAIN [None]
  - PERIPHERAL COLDNESS [None]
  - PERIPHERAL ISCHAEMIA [None]
  - PULSE ABSENT [None]
  - RENAL FAILURE ACUTE [None]
  - THERAPEUTIC AGENT TOXICITY [None]
  - VERTIGO [None]
